FAERS Safety Report 21099892 (Version 1)
Quarter: 2022Q3

REPORT INFORMATION
  Report Type: Spontaneous
  Country: CN (occurrence: CN)
  Receive Date: 20220719
  Receipt Date: 20220719
  Transmission Date: 20221027
  Serious: Yes (Other)
  Sender: FDA-Public Use
  Company Number: CN-JNJFOC-20220734112

PATIENT
  Age: 3 Year
  Sex: Male
  Weight: 11 kg

DRUGS (1)
  1. CHILDRENS MOTRIN [Suspect]
     Active Substance: IBUPROFEN
     Indication: Pyrexia
     Dosage: MEDICATION - DOSES:2?MEDICATION - DAYS:1
     Route: 048
     Dates: start: 20220625, end: 20220625

REACTIONS (2)
  - White blood cell count decreased [Recovered/Resolved]
  - Neutrophil count decreased [Recovered/Resolved]

NARRATIVE: CASE EVENT DATE: 20220629
